FAERS Safety Report 12525055 (Version 1)
Quarter: 2016Q3

REPORT INFORMATION
  Report Type: Spontaneous
  Country: BR (occurrence: BR)
  Receive Date: 20160704
  Receipt Date: 20160704
  Transmission Date: 20161109
  Serious: Yes (Other)
  Sender: FDA-Public Use
  Company Number: BR-PFIZER INC-2016272412

PATIENT
  Age: 50 Year
  Sex: Male
  Weight: 80 kg

DRUGS (4)
  1. XALATAN [Suspect]
     Active Substance: LATANOPROST
     Dosage: UNK
     Dates: start: 2016
  2. TIMOLOL MALEATE. [Concomitant]
     Active Substance: TIMOLOL MALEATE
     Indication: INTRAOCULAR PRESSURE INCREASED
     Dosage: 1 DROP IN EACH EYE EARLY AND 1 DROP IN EACH EYE IN THE AFTERNOON
     Route: 047
     Dates: start: 2000
  3. DRENATAN [Suspect]
     Active Substance: LATANOPROST
     Indication: INTRAOCULAR PRESSURE INCREASED
     Dosage: 1 DROP IN EACH EYE, 1X/DAY (ONLY AT NIGHT)
     Route: 047
     Dates: start: 201603, end: 201604
  4. XALATAN [Suspect]
     Active Substance: LATANOPROST
     Indication: INTRAOCULAR PRESSURE INCREASED
     Dosage: 1 DROP IN EACH EYE, 1X/DAY (ONLY AT NIGHT)
     Route: 047
     Dates: start: 2000, end: 201603

REACTIONS (3)
  - Eye injury [Recovered/Resolved]
  - Intraocular pressure increased [None]
  - Drug ineffective [None]

NARRATIVE: CASE EVENT DATE: 201605
